FAERS Safety Report 19593163 (Version 1)
Quarter: 2021Q3

REPORT INFORMATION
  Report Type: Spontaneous
  Country: US (occurrence: US)
  Receive Date: 20210722
  Receipt Date: 20210722
  Transmission Date: 20211014
  Serious: Yes (Hospitalization, Other)
  Sender: FDA-Public Use
  Company Number: US-BION-009947

PATIENT
  Age: 67 Year
  Sex: Male

DRUGS (1)
  1. IBUPROFEN. [Suspect]
     Active Substance: IBUPROFEN
     Indication: ARTHRALGIA
     Dosage: THREE TO FOUR TIMES A DAY

REACTIONS (3)
  - Drug ineffective [Not Recovered/Not Resolved]
  - Glomerulonephritis [Recovering/Resolving]
  - Tubulointerstitial nephritis [Recovering/Resolving]
